FAERS Safety Report 17641175 (Version 1)
Quarter: 2020Q2

REPORT INFORMATION
  Report Type: Report from Study
  Country: US (occurrence: US)
  Receive Date: 20200407
  Receipt Date: 20200407
  Transmission Date: 20200713
  Serious: Yes (Hospitalization)
  Sender: FDA-Public Use
  Company Number: US-TEVA-2020-US-1218248

PATIENT
  Age: 49 Year
  Sex: Female

DRUGS (14)
  1. AMIKACIN. [Suspect]
     Active Substance: AMIKACIN
     Indication: IMMUNE TOLERANCE INDUCTION
     Dosage: CONTINUOUS IV INFUSION; INFUSION BAG A (CONCENTRATION 0.2 MG/ML); THE AMIKACIN IN INFUSION BAG A ...
     Route: 041
  2. AMIKACIN. [Suspect]
     Active Substance: AMIKACIN
     Indication: URINARY TRACT INFECTION
     Dosage: CONTINUOUS IV INFUSION; INFUSION BAG A (CONCENTRATION 0.2 MG/ML); THE AMIKACIN IN INFUSION BAG A ...
     Route: 041
  3. AMIKACIN. [Suspect]
     Active Substance: AMIKACIN
     Dosage: CONTINUOUS IV INFUSION; INFUSION BAG B (CONCENTRATION 2 MG/ML); THE AMIKACIN IN INFUSION BAG B WA...
     Route: 041
  4. NORMAL SALINE [Concomitant]
     Active Substance: SODIUM CHLORIDE
     Indication: MEDICATION DILUTION
     Dosage: CONTINUOUS IV INFUSION; USED FOR RECONSTITUTION OF AMIKACIN
     Route: 041
  5. DEXTROSE. [Concomitant]
     Active Substance: DEXTROSE
     Indication: MEDICATION DILUTION
     Dosage: CONTINUOUS IV INFUSION; DEXTROSE 5% IN WATER; USED FOR RECONSTITUTION OF AMIKACIN
     Route: 041
  6. AMIKACIN. [Suspect]
     Active Substance: AMIKACIN
     Dosage: CONTINUOUS IV INFUSION; INFUSION BAG A (CONCENTRATION 0.2 MG/ML); THE AMIKACIN IN INFUSION BAG A ...
     Route: 041
  7. AMIKACIN. [Suspect]
     Active Substance: AMIKACIN
     Dosage: CONTINUOUS IV INFUSION; INFUSION BAG B (CONCENTRATION 2 MG/ML); THE AMIKACIN IN INFUSION BAG B WA...
     Route: 041
  8. AMIKACIN. [Suspect]
     Active Substance: AMIKACIN
     Dosage: CONTINUOUS IV INFUSION; INFUSION BAG B (CONCENTRATION 2 MG/ML); THE AMIKACIN IN INFUSION BAG B WA...
     Route: 041
  9. AMIKACIN. [Suspect]
     Active Substance: AMIKACIN
     Dosage: CONTINUOUS IV INFUSION; INFUSION BAG B (CONCENTRATION 2 MG/ML); THE AMIKACIN IN INFUSION BAG B WA...
     Route: 041
  10. AMIKACIN. [Suspect]
     Active Substance: AMIKACIN
     Dosage: CONTINUOUS IV INFUSION; INFUSION BAG A (CONCENTRATION 0.2 MG/ML); THE AMIKACIN IN INFUSION BAG A ...
     Route: 041
  11. AMIKACIN. [Suspect]
     Active Substance: AMIKACIN
     Dosage: CONTINUOUS IV INFUSION; INFUSION BAG A (CONCENTRATION 0.2 MG/ML); THE AMIKACIN IN INFUSION BAG A ...
     Route: 041
  12. AMIKACIN. [Suspect]
     Active Substance: AMIKACIN
     Dosage: CONTINUOUS IV INFUSION; INFUSION BAG B (CONCENTRATION 2 MG/ML); THE AMIKACIN IN INFUSION BAG B WA...
     Route: 041
  13. AMIKACIN. [Suspect]
     Active Substance: AMIKACIN
     Dosage: CONTINUOUS IV INFUSION; INFUSION BAG B (CONCENTRATION 2 MG/ML); THE AMIKACIN IN INFUSION BAG B WA...
     Route: 041
  14. AMIKACIN. [Suspect]
     Active Substance: AMIKACIN
     Indication: ENTEROBACTER INFECTION
     Route: 065

REACTIONS (3)
  - Rash [Unknown]
  - Anaphylactic reaction [Recovered/Resolved]
  - Pruritus [Unknown]
